FAERS Safety Report 9109122 (Version 1)
Quarter: 2013Q1

REPORT INFORMATION
  Report Type: Spontaneous
  Country: US (occurrence: US)
  Receive Date: 20130222
  Receipt Date: 20130222
  Transmission Date: 20140127
  Serious: Yes (Hospitalization)
  Sender: FDA-Public Use
  Company Number: US-JNJFOC-20130209118

PATIENT
  Age: 6 Decade
  Sex: Male

DRUGS (2)
  1. XARELTO [Suspect]
     Indication: THROMBOSIS
     Route: 048
  2. XARELTO [Suspect]
     Indication: THROMBOSIS
     Route: 048

REACTIONS (1)
  - Rash [Unknown]
